FAERS Safety Report 6642810-6 (Version None)
Quarter: 2010Q1

REPORT INFORMATION
  Report Type: 
  Country: None (occurrence: None)
  Receive Date: 20100319
  Receipt Date: 20100312
  Transmission Date: 20100710
  Serious: Yes (Hospitalization, Other)
  Sender: FDA-Public Use
  Company Number: US-PFIZER INC-2010032712

PATIENT
  Sex: Female
  Weight: 72.109 kg

DRUGS (13)
  1. REVATIO [Suspect]
     Indication: RESPIRATORY DISORDER
     Dosage: 20 MG, 1X/DAY
     Dates: start: 20091201, end: 20091201
  2. SILDENAFIL CITRATE [Suspect]
     Indication: RESPIRATORY DISORDER
     Dosage: 25 MG, 3X/DAY
     Dates: start: 20091223
  3. CARVEDILOL [Concomitant]
     Indication: CARDIAC DISORDER
     Dosage: 6.25 MG, UNK
  4. SIMVASTATIN [Concomitant]
     Indication: BLOOD CHOLESTEROL INCREASED
     Dosage: 80 MG, UNK
  5. LOVASTATIN [Concomitant]
     Indication: BLOOD CHOLESTEROL INCREASED
     Dosage: 40 MG, UNK
  6. FUROSEMIDE [Concomitant]
     Indication: FLUID RETENTION
     Dosage: 40 MG, UNK
  7. LISINOPRIL [Concomitant]
     Indication: HYPERTENSION
     Dosage: 5 MG, UNK
  8. RANITIDINE [Concomitant]
     Dosage: 300 MG, UNK
  9. ACETYLSALICYLIC ACID [Concomitant]
     Dosage: 325 MG, 1X/DAY
  10. PLAVIX [Concomitant]
     Indication: ANTICOAGULANT THERAPY
     Dosage: UNK
  11. FISH OIL [Concomitant]
     Dosage: UNK
  12. XANAX [Concomitant]
     Indication: ANXIETY
     Dosage: 0.5 MG, UNK
  13. PAROXETINE [Concomitant]
     Indication: MENTAL DISORDER
     Dosage: 40 MG, 1X/DAY

REACTIONS (2)
  - CHEST PAIN [None]
  - DYSPNOEA [None]
